FAERS Safety Report 20060427 (Version 1)
Quarter: 2021Q4

REPORT INFORMATION
  Report Type: Spontaneous
  Country: US (occurrence: US)
  Receive Date: 20211112
  Receipt Date: 20211112
  Transmission Date: 20220303
  Serious: Yes (Hospitalization)
  Sender: FDA-Public Use
  Company Number: US-CIPLA LTD.-2021US07378

PATIENT

DRUGS (8)
  1. DOLUTEGRAVIR [Suspect]
     Active Substance: DOLUTEGRAVIR
     Indication: HIV infection CDC category B
     Dosage: UNK
     Route: 065
  2. ZIDOVUDINE [Suspect]
     Active Substance: ZIDOVUDINE
     Indication: HIV infection CDC category B
     Dosage: UNK
     Route: 065
  3. ABACAVIR [Suspect]
     Active Substance: ABACAVIR
     Indication: HIV infection CDC category B
     Dosage: UNK
     Route: 065
  4. TENOFOVIR [Suspect]
     Active Substance: TENOFOVIR
     Indication: HIV infection CDC category B
     Dosage: UNK
     Route: 065
  5. EMTRICITABINE\TENOFOVIR [Suspect]
     Active Substance: EMTRICITABINE\TENOFOVIR
     Indication: HIV infection CDC category B
     Dosage: UNK
     Route: 065
  6. BICTEGRAVIR [Suspect]
     Active Substance: BICTEGRAVIR
     Indication: HIV infection CDC category B
     Dosage: UNK
     Route: 065
  7. ELVITEGRAVIR [Suspect]
     Active Substance: ELVITEGRAVIR
     Indication: HIV infection CDC category B
     Dosage: UNK
     Route: 065
  8. ELVITEGRAVIR [Suspect]
     Active Substance: ELVITEGRAVIR
     Dosage: UNK
     Route: 042

REACTIONS (3)
  - Exposure during pregnancy [Unknown]
  - Drug resistance [Unknown]
  - Premature delivery [Unknown]
